FAERS Safety Report 19705602 (Version 1)
Quarter: 2021Q3

REPORT INFORMATION
  Report Type: Report from Study
  Country: None (occurrence: US)
  Receive Date: 20210817
  Receipt Date: 20210817
  Transmission Date: 20211014
  Serious: Yes (Other)
  Sender: FDA-Public Use
  Company Number: US-ABBVIE-21K-163-4034120-00

PATIENT
  Age: 66 Year
  Sex: Female

DRUGS (2)
  1. HUMIRA [Suspect]
     Active Substance: ADALIMUMAB
     Dosage: CF
     Route: 058
  2. HUMIRA [Suspect]
     Active Substance: ADALIMUMAB
     Indication: RHEUMATOID ARTHRITIS
     Dosage: CITRATE FREE
     Route: 058

REACTIONS (12)
  - Injection site pain [Unknown]
  - Tympanic membrane perforation [Not Recovered/Not Resolved]
  - Road traffic accident [Unknown]
  - Peripheral coldness [Unknown]
  - Device breakage [Unknown]
  - Hypoaesthesia [Unknown]
  - Impaired healing [Not Recovered/Not Resolved]
  - Sinus disorder [Unknown]
  - Skin discolouration [Unknown]
  - Pre-existing condition improved [Unknown]
  - Therapeutic response unexpected [Unknown]
  - Liquid product physical issue [Unknown]

NARRATIVE: CASE EVENT DATE: 20210701
